FAERS Safety Report 7041870-0 (Version None)
Quarter: 2010Q4

REPORT INFORMATION
  Report Type: 
  Country: None (occurrence: None)
  Receive Date: 20101008
  Receipt Date: 20100927
  Transmission Date: 20110411
  Serious: Yes (Death)
  Sender: FDA-Public Use
  Company Number: ENTC2010-0333

PATIENT
  Sex: Female

DRUGS (1)
  1. STALEVO 100 [Suspect]

REACTIONS (1)
  - DEATH [None]
